FAERS Safety Report 18514252 (Version 1)
Quarter: 2020Q4

REPORT INFORMATION
  Report Type: Spontaneous
  Country: US (occurrence: US)
  Receive Date: 20201118
  Receipt Date: 20201118
  Transmission Date: 20210114
  Serious: No
  Sender: FDA-Public Use
  Company Number: US-SCIEGEN-2020SCISPO00374

PATIENT
  Age: 75 Year
  Sex: Female
  Weight: 60.3 kg

DRUGS (3)
  1. ARIPIPRAZOLE. [Suspect]
     Active Substance: ARIPIPRAZOLE
     Indication: SCHIZOPHRENIA
     Route: 065
     Dates: start: 2020
  2. QUCUAPINE (QUETIAPINE) [Interacting]
     Active Substance: QUETIAPINE
     Indication: PRODUCT USED FOR UNKNOWN INDICATION
     Route: 065
  3. FUMARATE [Concomitant]
     Indication: GINGIVITIS
     Dosage: HALF AT NIGHT
     Route: 065

REACTIONS (5)
  - Anger [Recovered/Resolved]
  - Diarrhoea [Not Recovered/Not Resolved]
  - Impulse-control disorder [Recovered/Resolved]
  - Nervousness [Recovered/Resolved]
  - Logorrhoea [Recovered/Resolved]

NARRATIVE: CASE EVENT DATE: 2020
